FAERS Safety Report 7124093-6 (Version None)
Quarter: 2010Q4

REPORT INFORMATION
  Report Type: 
  Country: None (occurrence: None)
  Receive Date: 20101126
  Receipt Date: 20101112
  Transmission Date: 20110411
  Serious: No
  Sender: FDA-Public Use
  Company Number: PHHY2010BR76260

PATIENT
  Sex: Female

DRUGS (2)
  1. GENTEAL (NVO) [Suspect]
     Indication: EYE LUBRICATION THERAPY
     Dosage: UNK
  2. GENTEAL GEL (NVO) [Suspect]
     Dosage: UNK

REACTIONS (4)
  - DRUG INEFFECTIVE [None]
  - EYE IRRITATION [None]
  - FEELING ABNORMAL [None]
  - OCULAR HYPERAEMIA [None]
